FAERS Safety Report 18902261 (Version 1)
Quarter: 2021Q1

REPORT INFORMATION
  Report Type: Spontaneous
  Country: AT (occurrence: AT)
  Receive Date: 20210217
  Receipt Date: 20210217
  Transmission Date: 20210420
  Serious: Yes (Other)
  Sender: FDA-Public Use
  Company Number: AT-FRESENIUS KABI-FK202101536

PATIENT
  Age: 60 Year
  Sex: Male

DRUGS (1)
  1. HEPARIN (MANUFACTURER UNKNOWN) [Suspect]
     Active Substance: HEPARIN SODIUM
     Indication: CATHETER MANAGEMENT
     Route: 065

REACTIONS (2)
  - Encapsulating peritoneal sclerosis [Recovered/Resolved]
  - Peritoneal dialysis complication [Recovered/Resolved]
